FAERS Safety Report 17073675 (Version 2)
Quarter: 2019Q4

REPORT INFORMATION
  Report Type: Report from Study
  Country: ES (occurrence: ES)
  Receive Date: 20191126
  Receipt Date: 20191210
  Transmission Date: 20200122
  Serious: Yes (Hospitalization)
  Sender: FDA-Public Use
  Company Number: ES-PFIZER INC-2019502419

PATIENT
  Age: 78 Year
  Sex: Female
  Weight: 75 kg

DRUGS (10)
  1. DEXAMETHASONE. [Concomitant]
     Active Substance: DEXAMETHASONE
     Indication: PREMEDICATION
     Dosage: 12 MG, UNK
     Route: 065
  2. DOXORUBICIN HCL [Suspect]
     Active Substance: DOXORUBICIN HYDROCHLORIDE
     Indication: OVARIAN CANCER
     Dosage: 40 MG, CYCLIC (CYCLE 2-5)
     Route: 042
     Dates: start: 20180302, end: 20180528
  3. TRABECTEDIN [Suspect]
     Active Substance: TRABECTEDIN
     Dosage: UNK
     Route: 042
     Dates: end: 201806
  4. DOXORUBICIN HCL [Suspect]
     Active Substance: DOXORUBICIN HYDROCHLORIDE
     Dosage: 53 MG, CYCLIC (CYCLE 1)
     Route: 042
     Dates: start: 20180212
  5. FORTECORTIN [DEXAMETHASONE] [Concomitant]
     Active Substance: DEXAMETHASONE
     Indication: PREMEDICATION
     Dosage: 4 MG, UNK
     Route: 065
  6. TRABECTEDIN [Suspect]
     Active Substance: TRABECTEDIN
     Indication: OVARIAN CANCER
     Dosage: 1.9 MG, CYCLIC (CYCLE 1)
     Route: 042
     Dates: start: 20180212
  7. TRABECTEDIN [Suspect]
     Active Substance: TRABECTEDIN
     Dosage: 1.42 MG, CYCLIC (CYCLE 2-5)
     Route: 042
     Dates: start: 20180302, end: 20180528
  8. DOXORUBICIN HCL [Suspect]
     Active Substance: DOXORUBICIN HYDROCHLORIDE
     Dosage: UNK UNK, CYCLIC
     Route: 042
     Dates: end: 201806
  9. ONDANSETRON [Concomitant]
     Active Substance: ONDANSETRON
     Indication: PREMEDICATION
     Dosage: 8 MG, UNK
     Route: 065
  10. POLARAMINE [Concomitant]
     Active Substance: DEXCHLORPHENIRAMINE MALEATE
     Indication: PREMEDICATION
     Route: 065

REACTIONS (2)
  - Hyponatraemia [Recovered/Resolved]
  - Respiratory tract infection [Recovered/Resolved]

NARRATIVE: CASE EVENT DATE: 20180217
